FAERS Safety Report 25148405 (Version 1)
Quarter: 2025Q2

REPORT INFORMATION
  Report Type: Spontaneous
  Country: FR (occurrence: FR)
  Receive Date: 20250402
  Receipt Date: 20250402
  Transmission Date: 20250717
  Serious: Yes (Other)
  Sender: AUROBINDO
  Company Number: FR-AFSSAPS-PB2025000287

PATIENT
  Age: 55 Year
  Sex: Female
  Weight: 80 kg

DRUGS (1)
  1. ECONAZOLE [Suspect]
     Active Substance: ECONAZOLE
     Indication: Fungal foot infection
     Route: 003
     Dates: start: 20250304, end: 20250306

REACTIONS (4)
  - Oedema peripheral [Recovering/Resolving]
  - Application site hypersensitivity [Recovering/Resolving]
  - Application site pain [Recovering/Resolving]
  - Application site vesicles [Recovering/Resolving]

NARRATIVE: CASE EVENT DATE: 20250304
